FAERS Safety Report 4717911-X (Version None)
Quarter: 2005Q3

REPORT INFORMATION
  Report Type: 
  Country: None (occurrence: None)
  Receive Date: 20050715
  Receipt Date: 20050715
  Transmission Date: 20060218
  Serious: Yes (Life-Threatening, Hospitalization)
  Sender: FDA-Public Use
  Company Number: 2005-02343

PATIENT
  Age: 83 Year
  Sex: Female

DRUGS (7)
  1. TRAMADOL HCL [Suspect]
     Indication: PAIN IN EXTREMITY
     Dosage: 50MG TID X 5D
     Route: 048
     Dates: start: 20050101
  2. RAMIPRIL [Concomitant]
  3. ASPIRIN [Concomitant]
  4. BEZAFIBRATE [Concomitant]
  5. BISOPROLOL [Concomitant]
  6. TIOTROPIUM BROMIDE [Concomitant]
  7. ADVAIR DISKUS 100/50 [Concomitant]

REACTIONS (1)
  - ANGIONEUROTIC OEDEMA [None]
